FAERS Safety Report 19375000 (Version 1)
Quarter: 2021Q2

REPORT INFORMATION
  Report Type: Spontaneous
  Country: US (occurrence: US)
  Receive Date: 20210604
  Receipt Date: 20210604
  Transmission Date: 20210717
  Serious: Yes (Death, Other)
  Sender: FDA-Public Use
  Company Number: US-TORRENT-00011119

PATIENT
  Age: 87 Year
  Sex: Male

DRUGS (3)
  1. BROMETHALIN [Suspect]
     Active Substance: BROMETHALIN
     Indication: PRODUCT USED FOR UNKNOWN INDICATION
     Dosage: SLURRY OF 56 GRAMS
  2. TRAZODONE [Suspect]
     Active Substance: TRAZODONE HYDROCHLORIDE
     Indication: PRODUCT USED FOR UNKNOWN INDICATION
     Dosage: UNKNOWN
  3. BORIC ACID [Suspect]
     Active Substance: BORIC ACID
     Indication: PRODUCT USED FOR UNKNOWN INDICATION
     Dosage: UNKNOWN

REACTIONS (5)
  - Depressed level of consciousness [Fatal]
  - Electrocardiogram QT prolonged [Unknown]
  - Aspiration [Fatal]
  - Toxicity to various agents [Unknown]
  - Lactic acidosis [Unknown]
